FAERS Safety Report 20158992 (Version 2)
Quarter: 2021Q4

REPORT INFORMATION
  Report Type: Spontaneous
  Country: US (occurrence: US)
  Receive Date: 20211208
  Receipt Date: 20211214
  Transmission Date: 20220303
  Serious: No
  Sender: FDA-Public Use
  Company Number: US-GSKCCFUS-Case-01233642_AE-72333

PATIENT
  Sex: Female

DRUGS (1)
  1. BENLYSTA [Suspect]
     Active Substance: BELIMUMAB
     Indication: Systemic lupus erythematosus
     Dosage: UNK(200MG/ML)
     Dates: start: 202108

REACTIONS (4)
  - Dizziness [Unknown]
  - Injection site mass [Not Recovered/Not Resolved]
  - Injection site haemorrhage [Unknown]
  - Product complaint [Unknown]

NARRATIVE: CASE EVENT DATE: 20211201
